FAERS Safety Report 6710609-8 (Version None)
Quarter: 2010Q2

REPORT INFORMATION
  Report Type: 
  Country: None (occurrence: None)
  Receive Date: 20100504
  Receipt Date: 20100423
  Transmission Date: 20101027
  Serious: Yes (Hospitalization, Other)
  Sender: FDA-Public Use
  Company Number: IT-AMGEN-KDL407969

PATIENT
  Age: 2 Year
  Sex: Male

DRUGS (2)
  1. NEULASTA [Suspect]
     Indication: NEUTROPENIA
  2. FILGRASTIM [Suspect]
     Indication: NEUTROPENIA

REACTIONS (5)
  - ACCIDENTAL OVERDOSE [None]
  - FLUID RETENTION [None]
  - PNEUMONIA FUNGAL [None]
  - PYREXIA [None]
  - WRONG DRUG ADMINISTERED [None]
